FAERS Safety Report 24182222 (Version 3)
Quarter: 2025Q1

REPORT INFORMATION
  Report Type: Spontaneous
  Country: US (occurrence: US)
  Receive Date: 20240807
  Receipt Date: 20250214
  Transmission Date: 20250408
  Serious: Yes (Hospitalization, Other)
  Sender: RANBAXY
  Company Number: US-SUN PHARMACEUTICAL INDUSTRIES LTD-2024R1-437393

PATIENT
  Sex: Female
  Weight: 66.213 kg

DRUGS (2)
  1. EPOPROSTENOL [Suspect]
     Active Substance: EPOPROSTENOL
     Indication: Pulmonary arterial hypertension
     Route: 042
     Dates: start: 20240305
  2. EPOPROSTENOL [Suspect]
     Active Substance: EPOPROSTENOL
     Route: 042
     Dates: start: 20240305

REACTIONS (6)
  - Syncope [Unknown]
  - Pulmonary hypertension [Unknown]
  - Application site erythema [Unknown]
  - Pruritus [Unknown]
  - Burning sensation [Unknown]
  - Skin irritation [Unknown]
